FAERS Safety Report 4286338-X (Version None)
Quarter: 2004Q1

REPORT INFORMATION
  Report Type: 
  Country: None (occurrence: None)
  Receive Date: 20040121
  Receipt Date: 20030718
  Transmission Date: 20041129
  Serious: Yes (Other)
  Sender: FDA-Public Use
  Company Number: A03200301619

PATIENT
  Age: 76 Year
  Sex: Female
  Weight: 72.5755 kg

DRUGS (20)
  1. PLAVIX [Suspect]
     Indication: CORONARY ARTERY SURGERY
     Dosage: 75 MG QD - ORAL
     Route: 048
     Dates: start: 20010901, end: 20020801
  2. PLAVIX [Suspect]
     Indication: MYOCARDIAL INFARCTION
     Dosage: 75 MG QD - ORAL
     Route: 048
     Dates: start: 20010901, end: 20020801
  3. LISINOPRIL [Concomitant]
  4. HYDROCHLOROTHIAZICE/TRIAMTERENE [Concomitant]
  5. GLYBURIDE [Concomitant]
  6. GLIMEPIRIDE [Concomitant]
  7. AMIODARONE [Concomitant]
  8. ISOSORBIDE DINITRATE [Concomitant]
  9. FUROSEMIDE [Concomitant]
  10. POTASSIUM [Concomitant]
  11. METOLAZONE [Concomitant]
  12. ACETYLSALICYLIC ACID SRT [Concomitant]
  13. METOPROLOL SUCCINATE [Concomitant]
  14. VITAMIN E [Concomitant]
  15. VITAMIN A/VITAMIN D [Concomitant]
  16. CHROMIUM [Concomitant]
  17. VITAMIN B6 [Concomitant]
  18. VITMAIN B12 [Concomitant]
  19. ZINC SULFATE [Concomitant]
  20. VITAMIN C [Concomitant]

REACTIONS (4)
  - ASTHENIA [None]
  - CONTUSION [None]
  - PEPTIC ULCER HAEMORRHAGE [None]
  - RED BLOOD CELL COUNT DECREASED [None]
